FAERS Safety Report 20955437 (Version 1)
Quarter: 2022Q2

REPORT INFORMATION
  Report Type: Spontaneous
  Country: US (occurrence: None)
  Receive Date: 20220614
  Receipt Date: 20220614
  Transmission Date: 20220720
  Serious: No
  Sender: FDA-Public Use
  Company Number: US-MDD US Operations-MDD202110-002021

PATIENT
  Age: 66 Year
  Sex: Male
  Weight: 77 kg

DRUGS (8)
  1. APOKYN [Suspect]
     Active Substance: APOMORPHINE HYDROCHLORIDE
     Indication: Parkinson^s disease
     Route: 058
     Dates: start: 20210915
  2. AFLEX [Concomitant]
     Indication: Seizure
     Dosage: NOT PROVIDED
  3. AFLEX [Concomitant]
     Indication: Hypertension
  4. TEGRETOL [Concomitant]
     Active Substance: CARBAMAZEPINE
     Indication: Brain injury
     Dosage: NOT PROVIDED
  5. CARBIDOPA\LEVODOPA [Concomitant]
     Active Substance: CARBIDOPA\LEVODOPA
     Dosage: NOT PROVIDED
  6. NEUPRO [Concomitant]
     Active Substance: ROTIGOTINE
     Dosage: NOT PROVIDED
  7. LOSARTAN [Concomitant]
     Active Substance: LOSARTAN
     Indication: Blood pressure measurement
     Dosage: NOT PROVIDED
  8. NEURONTIN [Concomitant]
     Active Substance: GABAPENTIN
     Dosage: NOT PROVIDED

REACTIONS (1)
  - Gait disturbance [Unknown]

NARRATIVE: CASE EVENT DATE: 20210101
